FAERS Safety Report 7705293-0 (Version None)
Quarter: 2011Q3

REPORT INFORMATION
  Report Type: 
  Country: None (occurrence: None)
  Receive Date: 20110818
  Receipt Date: 20110802
  Transmission Date: 20111222
  Serious: Yes (Other)
  Sender: FDA-Public Use
  Company Number: 2011MA010847

PATIENT
  Age: 42 Year
  Sex: Female

DRUGS (3)
  1. HYDROCORTISONE 0.05% CREAM [Suspect]
     Indication: DERMATITIS
     Dosage: ; TOP
     Route: 061
  2. METFORMIN HYDROCHLORIDE [Concomitant]
  3. GLICLAZIDE [Concomitant]

REACTIONS (5)
  - DIABETES MELLITUS INADEQUATE CONTROL [None]
  - INCORRECT DRUG ADMINISTRATION DURATION [None]
  - DERMATITIS [None]
  - HYPERGLYCAEMIA [None]
  - GLYCOSYLATED HAEMOGLOBIN INCREASED [None]
